FAERS Safety Report 6940573-8 (Version None)
Quarter: 2010Q3

REPORT INFORMATION
  Report Type: 
  Country: None (occurrence: None)
  Receive Date: 20100825
  Receipt Date: 20100818
  Transmission Date: 20110219
  Serious: Yes (Hospitalization)
  Sender: FDA-Public Use
  Company Number: FR-BAYER-201036538GPV

PATIENT
  Age: 92 Year
  Sex: Female

DRUGS (11)
  1. MOXIFLOXACIN HCL [Suspect]
     Indication: BRONCHITIS
     Route: 048
     Dates: start: 20100108, end: 20100114
  2. ROCEPHIN [Concomitant]
     Indication: BRONCHITIS
     Route: 030
  3. BROMAZEPAM [Concomitant]
     Indication: DEPRESSION
     Dosage: TOTAL DAILY DOSE: 6 MG  UNIT DOSE: 6 MG
     Route: 048
  4. FUROSEMIDE [Concomitant]
     Indication: HYPERTENSION
     Dosage: TOTAL DAILY DOSE: 20 MG  UNIT DOSE: 20 MG
     Route: 048
  5. MICARDIS [Concomitant]
     Indication: HYPERTENSION
     Route: 048
  6. NITRENDIPINE [Concomitant]
     Indication: HYPERTENSION
     Route: 048
  7. INSULATARD [Concomitant]
     Indication: TYPE 1 DIABETES MELLITUS
     Route: 058
  8. KARDEGIC [Concomitant]
     Indication: THROMBOSIS PROPHYLAXIS
     Route: 048
  9. MOLSIDOMINE [Concomitant]
     Indication: ANGINA PECTORIS
     Route: 048
  10. PRAVASTATINE SODIQUE [Concomitant]
     Indication: HYPERCHOLESTEROLAEMIA
     Route: 048
  11. SERETIDE [Concomitant]
     Indication: ASTHMA
     Route: 055

REACTIONS (1)
  - ACUTE GENERALISED EXANTHEMATOUS PUSTULOSIS [None]
